FAERS Safety Report 12889970 (Version 2)
Quarter: 2016Q4

REPORT INFORMATION
  Report Type: Spontaneous
  Country: CA (occurrence: CA)
  Receive Date: 20161027
  Receipt Date: 20161122
  Transmission Date: 20170207
  Serious: Yes (Life-Threatening, Hospitalization)
  Sender: FDA-Public Use
  Company Number: CA-SA-2016SA135470

PATIENT
  Age: 47 Year
  Sex: Female
  Weight: 65.77 kg

DRUGS (25)
  1. NOVOMIX [Suspect]
     Active Substance: INSULIN ASPART
     Dosage: 15U AM AND 10 U PM
     Route: 065
     Dates: start: 20101112, end: 20101126
  2. AVANDIA [Concomitant]
     Active Substance: ROSIGLITAZONE MALEATE
  3. NOVOLIN GE [Concomitant]
     Dates: start: 2007
  4. NOVOLIN-TORONTO [Suspect]
     Active Substance: INSULIN HUMAN
     Indication: DIABETES MELLITUS
     Dosage: 100 UNITS/ML
     Route: 058
     Dates: start: 20150928, end: 20151204
  5. HUMALOG [Suspect]
     Active Substance: INSULIN LISPRO
     Dosage: DOSE:15 UNIT(S)
     Route: 065
  6. NOVOMIX [Suspect]
     Active Substance: INSULIN ASPART
     Dosage: 15/18/10
     Route: 065
     Dates: start: 20100903
  7. LEVEMIR [Suspect]
     Active Substance: INSULIN DETEMIR
     Indication: DIABETES MELLITUS
     Route: 058
     Dates: start: 20091023, end: 20091223
  8. APIDRA [Suspect]
     Active Substance: INSULIN GLULISINE
     Indication: DIABETES MELLITUS
     Route: 058
     Dates: start: 20100831
  9. APIDRA [Suspect]
     Active Substance: INSULIN GLULISINE
     Indication: DIABETES MELLITUS
     Dosage: 4/10/10
     Route: 065
     Dates: start: 20101126
  10. NOVOLIN NPH [Suspect]
     Active Substance: INSULIN HUMAN
     Indication: DIABETES MELLITUS
     Route: 058
     Dates: start: 20100219
  11. GLYBURIDE. [Concomitant]
     Active Substance: GLYBURIDE
  12. LEVEMIR [Suspect]
     Active Substance: INSULIN DETEMIR
     Indication: DIABETES MELLITUS
     Route: 058
  13. NOVOMIX [Suspect]
     Active Substance: INSULIN ASPART
     Route: 065
     Dates: start: 20100824
  14. APIDRA [Suspect]
     Active Substance: INSULIN GLULISINE
     Indication: DIABETES MELLITUS
     Route: 065
  15. NOVOLIN-TORONTO [Suspect]
     Active Substance: INSULIN HUMAN
     Indication: DIABETES MELLITUS
     Route: 058
  16. NOVOMIX [Suspect]
     Active Substance: INSULIN ASPART
     Route: 065
     Dates: start: 20100329
  17. PRANDASE [Concomitant]
  18. APIDRA [Suspect]
     Active Substance: INSULIN GLULISINE
     Indication: DIABETES MELLITUS
     Route: 065
     Dates: start: 20101112
  19. NOVOLIN NPH [Suspect]
     Active Substance: INSULIN HUMAN
     Indication: DIABETES MELLITUS
     Route: 058
     Dates: start: 20040823
  20. NOVORAPID [Concomitant]
     Active Substance: INSULIN ASPART
     Dates: start: 20100219
  21. NOVOMIX [Suspect]
     Active Substance: INSULIN ASPART
     Route: 065
  22. NOVOMIX [Suspect]
     Active Substance: INSULIN ASPART
     Dosage: 15/10/10
     Route: 065
     Dates: start: 20100831
  23. NPH INSULIN [Concomitant]
     Active Substance: INSULIN BEEF
     Indication: DIABETES MELLITUS
     Dosage: 100 UNITS/ML DOSE:14 UNIT(S)
     Route: 058
  24. NPH INSULIN [Concomitant]
     Active Substance: INSULIN BEEF
     Indication: DIABETES MELLITUS
     Dates: start: 20101208, end: 20101223
  25. NOVORAPID [Concomitant]
     Active Substance: INSULIN ASPART
     Dosage: AT SUPPERTIME 15/10/10 UNITS
     Dates: start: 20100824

REACTIONS (16)
  - Blood ketone body [Unknown]
  - Erythema [Unknown]
  - Fluid retention [Unknown]
  - Urticaria [Unknown]
  - Myalgia [Recovered/Resolved]
  - Pain [Unknown]
  - Anaphylactic reaction [Recovered/Resolved]
  - Rash [Recovered/Resolved]
  - Pharyngeal oedema [Recovered/Resolved]
  - Blood glucose increased [Unknown]
  - Dyspnoea [Recovered/Resolved]
  - Pain in extremity [Unknown]
  - Peripheral swelling [Unknown]
  - Dehydration [Unknown]
  - Asthenia [Unknown]
  - Ear discomfort [Unknown]

NARRATIVE: CASE EVENT DATE: 2004
